FAERS Safety Report 7542884-4 (Version None)
Quarter: 2011Q2

REPORT INFORMATION
  Report Type: 
  Country: None (occurrence: None)
  Receive Date: 20110613
  Receipt Date: 20110531
  Transmission Date: 20111010
  Serious: Yes (Other)
  Sender: FDA-Public Use
  Company Number: PHHY2011US47670

PATIENT
  Sex: Male

DRUGS (2)
  1. FOCALIN XR [Suspect]
     Dosage: UNK UKN, QD
  2. GUANFACINE HYDROCHLORIDE [Suspect]
     Dosage: UNK UKN, UNK

REACTIONS (6)
  - ABNORMAL BEHAVIOUR [None]
  - IRRITABILITY [None]
  - DEPRESSED MOOD [None]
  - HOSTILITY [None]
  - ANGER [None]
  - SELF INJURIOUS BEHAVIOUR [None]
